FAERS Safety Report 5609984-7 (Version None)
Quarter: 2008Q1

REPORT INFORMATION
  Report Type: 
  Country: None (occurrence: None)
  Receive Date: 20080129
  Receipt Date: 20080108
  Transmission Date: 20080703
  Serious: Yes (Hospitalization, Other)
  Sender: FDA-Public Use
  Company Number: 200810157BCC

PATIENT
  Age: 72 Year
  Sex: Female
  Weight: 66.6788 kg

DRUGS (9)
  1. ONE A DAY WOMEN'S TABLET [Suspect]
     Indication: HYPOVITAMINOSIS
     Dosage: ORAL
     Route: 048
  2. ASPIRIN [Suspect]
     Indication: DRUG USE FOR UNKNOWN INDICATION
  3. CELEBREX [Concomitant]
  4. PREMARINA [Concomitant]
  5. LYRICA [Concomitant]
  6. COREG [Concomitant]
  7. NEXIUM [Concomitant]
  8. FUROSEMIDE [Concomitant]
  9. CALCIUM WITH VITAMIN D [Concomitant]

REACTIONS (2)
  - COELIAC DISEASE [None]
  - RENAL FAILURE [None]
